FAERS Safety Report 5744203-2 (Version None)
Quarter: 2008Q2

REPORT INFORMATION
  Report Type: 
  Country: None (occurrence: None)
  Receive Date: 20080515
  Receipt Date: 20080515
  Transmission Date: 20081010
  Serious: Yes (Life-Threatening, Hospitalization)
  Sender: FDA-Public Use
  Company Number: None

PATIENT
  Age: 57 Year
  Sex: Male
  Weight: 67 kg

DRUGS (7)
  1. DARUNAVIR  300MG  TIBOTEC [Suspect]
     Indication: HIV INFECTION
     Dosage: 600MG Q12H PO
     Route: 048
     Dates: start: 20071109, end: 20080514
  2. DARUNAVIR  300MG  TIBOTEC [Suspect]
     Indication: MULTIPLE-DRUG RESISTANCE
     Dosage: 600MG Q12H PO
     Route: 048
     Dates: start: 20071109, end: 20080514
  3. RALTEGRAVIR  400MG  MERCK [Suspect]
     Indication: HIV INFECTION
     Dosage: 400MG Q12H PO
     Route: 048
     Dates: start: 20071109, end: 20080514
  4. RALTEGRAVIR  400MG  MERCK [Suspect]
     Indication: MULTIPLE-DRUG RESISTANCE
     Dosage: 400MG Q12H PO
     Route: 048
     Dates: start: 20071109, end: 20080514
  5. TRIMETHOPRIM + SULFAMETHOXAZOLE [Concomitant]
  6. TENOFOVIR/EMTRICITABINE [Concomitant]
  7. RITONOVIR [Concomitant]

REACTIONS (3)
  - BURKITT'S LYMPHOMA [None]
  - CENTRAL NERVOUS SYSTEM LESION [None]
  - NEUROPATHY PERIPHERAL [None]
